FAERS Safety Report 15849897 (Version 2)
Quarter: 2019Q1

REPORT INFORMATION
  Report Type: Report from Study
  Country: US (occurrence: US)
  Receive Date: 20190121
  Receipt Date: 20190206
  Transmission Date: 20190417
  Serious: Yes (Death, Other)
  Sender: FDA-Public Use
  Company Number: US-ACTELION-A-US2019-184893

PATIENT
  Age: 58 Year
  Sex: Male
  Weight: 123.81 kg

DRUGS (3)
  1. UPTRAVI [Suspect]
     Active Substance: SELEXIPAG
     Indication: PULMONARY HYPERTENSION
     Dosage: 1000 MCG, BID
     Route: 048
  2. UPTRAVI [Suspect]
     Active Substance: SELEXIPAG
     Dosage: 1600 MCG, BID
     Route: 048
  3. ORENITRAM [Suspect]
     Active Substance: TREPROSTINIL
     Indication: PRODUCT USED FOR UNKNOWN INDICATION
     Route: 065

REACTIONS (8)
  - Headache [Not Recovered/Not Resolved]
  - Diarrhoea [Unknown]
  - Ammonia increased [Unknown]
  - Death [Fatal]
  - Liver disorder [Unknown]
  - Encephalopathy [Unknown]
  - Blood creatinine increased [Unknown]
  - Swelling [Unknown]

NARRATIVE: CASE EVENT DATE: 20190104
